FAERS Safety Report 11897464 (Version 6)
Quarter: 2016Q2

REPORT INFORMATION
  Report Type: Spontaneous
  Country: JP (occurrence: JP)
  Receive Date: 20160108
  Receipt Date: 20160401
  Transmission Date: 20160815
  Serious: Yes (Life-Threatening, Hospitalization)
  Sender: FDA-Public Use
  Company Number: JP-ABBVIE-16K-087-1532242-00

PATIENT
  Age: 67 Year
  Sex: Female
  Weight: 36 kg

DRUGS (7)
  1. HUMIRA [Suspect]
     Active Substance: ADALIMUMAB
     Route: 058
     Dates: start: 20130906, end: 20151125
  2. RHEUMATREX [Suspect]
     Active Substance: METHOTREXATE SODIUM
     Indication: RHEUMATOID ARTHRITIS
     Route: 048
     Dates: start: 20080610, end: 20080627
  3. RHEUMATREX [Suspect]
     Active Substance: METHOTREXATE SODIUM
     Route: 048
     Dates: start: 20080704, end: 20080805
  4. HUMIRA [Suspect]
     Active Substance: ADALIMUMAB
     Route: 058
     Dates: start: 20101203, end: 20130816
  5. RHEUMATREX [Suspect]
     Active Substance: METHOTREXATE SODIUM
     Route: 048
     Dates: start: 20080812, end: 20081209
  6. RHEUMATREX [Suspect]
     Active Substance: METHOTREXATE SODIUM
     Route: 048
     Dates: start: 20081216, end: 20151121
  7. HUMIRA [Suspect]
     Active Substance: ADALIMUMAB
     Indication: RHEUMATOID ARTHRITIS
     Route: 058
     Dates: start: 20100427, end: 20101119

REACTIONS (10)
  - Malaise [Not Recovered/Not Resolved]
  - Febrile neutropenia [Recovered/Resolved]
  - Depressed level of consciousness [Not Recovered/Not Resolved]
  - Cystitis-like symptom [Unknown]
  - Thrombocytopenia [Unknown]
  - Osteoporosis [Recovered/Resolved with Sequelae]
  - Herpes zoster [Recovered/Resolved]
  - Asthenia [Not Recovered/Not Resolved]
  - Spinal compression fracture [Recovered/Resolved with Sequelae]
  - Sepsis [Recovering/Resolving]

NARRATIVE: CASE EVENT DATE: 20101023
